FAERS Safety Report 20585960 (Version 1)
Quarter: 2022Q1

REPORT INFORMATION
  Report Type: Spontaneous
  Country: JP (occurrence: JP)
  Receive Date: 20220312
  Receipt Date: 20220312
  Transmission Date: 20220423
  Serious: Yes (Other)
  Sender: FDA-Public Use
  Company Number: JP-MALLINCKRODT-T202200337

PATIENT
  Age: 49 Year
  Sex: Female

DRUGS (7)
  1. AMITIZA [Suspect]
     Active Substance: LUBIPROSTONE
     Indication: Constipation
     Dosage: 24 MICROGRAM, QD
     Route: 048
     Dates: start: 20210225, end: 20210317
  2. AMITIZA [Suspect]
     Active Substance: LUBIPROSTONE
     Dosage: 24 MICROGRAM, BID
     Route: 048
     Dates: start: 20210318, end: 202201
  3. PREDONINE [Concomitant]
     Active Substance: PREDNISOLONE
     Indication: Thyroiditis acute
     Dosage: 20 MILLIGRAM, QD
     Route: 048
     Dates: start: 20210515
  4. LOXOPROFEN SODIUM DIHYDRATE [Concomitant]
     Active Substance: LOXOPROFEN SODIUM DIHYDRATE
     Indication: Thyroiditis acute
     Dosage: 180 MILLIGRAM, QD
     Route: 048
     Dates: start: 20210515
  5. NEXIUM [Concomitant]
     Active Substance: ESOMEPRAZOLE MAGNESIUM
     Indication: Thyroiditis acute
     Dosage: UNK
     Route: 065
     Dates: start: 20210515
  6. MOSAPRIDE CITRATE [Concomitant]
     Active Substance: MOSAPRIDE CITRATE
     Indication: Prophylaxis of nausea and vomiting
     Dosage: 10 MILLIGRAM, QD
     Route: 048
     Dates: start: 20210318
  7. BISOPROLOL FUMARATE [Concomitant]
     Active Substance: BISOPROLOL FUMARATE
     Indication: Product used for unknown indication
     Dosage: 0.625 MILLIGRAM, QD
     Route: 048

REACTIONS (3)
  - Cholelithiasis [Recovered/Resolved]
  - Cholecystectomy [Recovered/Resolved]
  - Clubbing [Recovered/Resolved]

NARRATIVE: CASE EVENT DATE: 20210628
